FAERS Safety Report 6826895-X (Version None)
Quarter: 2010Q2

REPORT INFORMATION
  Report Type: 
  Country: None (occurrence: None)
  Receive Date: 20100520
  Receipt Date: 20090416
  Transmission Date: 20101027
  Serious: Yes (Hospitalization, Other)
  Sender: FDA-Public Use
  Company Number: 2009200313

PATIENT
  Age: 50 Year
  Sex: Female
  Weight: 59 kg

DRUGS (7)
  1. PROVERA [Suspect]
     Indication: HORMONE REPLACEMENT THERAPY
     Dosage: 10 MG, ORAL
     Route: 048
     Dates: start: 19800101
  2. LOESTRIN 1.5/30 [Suspect]
     Indication: HORMONE REPLACEMENT THERAPY
     Dates: start: 19980824
  3. PREMARIN [Suspect]
     Indication: HORMONE REPLACEMENT THERAPY
     Dosage: 0.625/5MG
     Dates: end: 20010301
  4. PREMPRO [Suspect]
     Indication: HORMONE REPLACEMENT THERAPY
  5. ESTROGENS () [Suspect]
     Indication: HORMONE REPLACEMENT THERAPY
  6. TOPROL-XL [Concomitant]
  7. HYDROCHLOROTHIAZIDE [Concomitant]

REACTIONS (1)
  - BREAST CANCER [None]
